FAERS Safety Report 18147513 (Version 3)
Quarter: 2025Q2

REPORT INFORMATION
  Report Type: Report from Study
  Country: GB (occurrence: GB)
  Receive Date: 20200814
  Receipt Date: 20250628
  Transmission Date: 20250716
  Serious: Yes (Other)
  Sender: AUROBINDO
  Company Number: GB-SA-2020SA193800

PATIENT
  Age: 40 Year

DRUGS (5)
  1. LAMIVUDINE [Suspect]
     Active Substance: LAMIVUDINE
     Indication: HIV infection
     Route: 065
  2. LAMIVUDINE [Suspect]
     Active Substance: LAMIVUDINE
     Indication: Chronic hepatitis B
  3. TENOFOVIR DISOPROXIL [Suspect]
     Active Substance: TENOFOVIR DISOPROXIL
     Indication: HIV infection
     Route: 065
  4. TENOFOVIR DISOPROXIL [Suspect]
     Active Substance: TENOFOVIR DISOPROXIL
     Indication: Chronic hepatitis B
  5. EMTRICITABINE [Concomitant]
     Active Substance: EMTRICITABINE
     Indication: HIV infection
     Route: 065

REACTIONS (6)
  - Viral mutation identified [Unknown]
  - Viraemia [Unknown]
  - Drug resistance [Unknown]
  - Pathogen resistance [Unknown]
  - Virologic failure [Unknown]
  - Drug ineffective [Unknown]
